FAERS Safety Report 9843660 (Version 1)
Quarter: 2013Q4

REPORT INFORMATION
  Report Type: Spontaneous
  Country: US (occurrence: None)
  Receive Date: 20131223
  Receipt Date: 20131223
  Transmission Date: 20140711
  Serious: Yes (Other)
  Sender: FDA-Public Use
  Company Number: 219717LEO

PATIENT
  Sex: Female

DRUGS (1)
  1. PICATO [Suspect]
     Indication: ACTINIC KERATOSIS
     Route: 061
     Dates: end: 20121118

REACTIONS (6)
  - Pain [None]
  - Contusion [None]
  - Application site discolouration [None]
  - Application site erythema [None]
  - Application site discomfort [None]
  - Off label use [None]
